FAERS Safety Report 6184263-0 (Version None)
Quarter: 2009Q2

REPORT INFORMATION
  Report Type: 
  Country: None (occurrence: None)
  Receive Date: 20090508
  Receipt Date: 20090430
  Transmission Date: 20091009
  Serious: Yes (Hospitalization)
  Sender: FDA-Public Use
  Company Number: US-GILEAD-2009-0021559

PATIENT
  Sex: Female

DRUGS (9)
  1. LETAIRIS [Suspect]
     Indication: PULMONARY HYPERTENSION
     Route: 048
     Dates: start: 20090401, end: 20090413
  2. ACTOS [Suspect]
     Route: 048
     Dates: end: 20090414
  3. TOPROL-XL [Concomitant]
     Dates: start: 20050124
  4. LANOXIN [Concomitant]
     Dates: start: 20050124
  5. COUMADIN [Concomitant]
     Dates: start: 20050124
  6. PRAVACHOL [Concomitant]
  7. FUROSEMIDE [Concomitant]
  8. LISINOPRIL AND HYDROCHLOROTHIAZIDE [Concomitant]
     Dates: start: 20050124
  9. XANAX [Concomitant]

REACTIONS (6)
  - CARDIAC FAILURE CONGESTIVE [None]
  - DYSPNOEA [None]
  - HOT FLUSH [None]
  - HYPOXIA [None]
  - INSOMNIA [None]
  - OEDEMA [None]
